FAERS Safety Report 11702330 (Version 2)
Quarter: 2015Q4

REPORT INFORMATION
  Report Type: Report from Study
  Country: US (occurrence: US)
  Receive Date: 20151105
  Receipt Date: 20151116
  Transmission Date: 20160304
  Serious: Yes (Death, Hospitalization)
  Sender: FDA-Public Use
  Company Number: US-ASTRAZENECA-2015SE11488

PATIENT
  Age: 82 Year
  Sex: Female
  Weight: 108.9 kg

DRUGS (14)
  1. SYMBICORT [Suspect]
     Active Substance: BUDESONIDE\FORMOTEROL FUMARATE DIHYDRATE
     Indication: CHRONIC OBSTRUCTIVE PULMONARY DISEASE
     Dosage: 160 4.5MCG, 2 PUFFS TWICE A DAY
     Route: 055
     Dates: start: 2013
  2. SYMBICORT [Suspect]
     Active Substance: BUDESONIDE\FORMOTEROL FUMARATE DIHYDRATE
     Indication: CHRONIC OBSTRUCTIVE PULMONARY DISEASE
     Dosage: 160 4.5MCG, 2 PUFFS TWICE A DAY
     Route: 055
     Dates: start: 20150130
  3. SYMBICORT [Suspect]
     Active Substance: BUDESONIDE\FORMOTEROL FUMARATE DIHYDRATE
     Indication: ASTHMA
     Dosage: 160 4.5MCG, 2 PUFFS TWICE A DAY
     Route: 055
     Dates: start: 2013
  4. SYMBICORT [Suspect]
     Active Substance: BUDESONIDE\FORMOTEROL FUMARATE DIHYDRATE
     Indication: EMPHYSEMA
     Dosage: 160 4.5MCG, 2 PUFFS TWICE A DAY
     Route: 055
     Dates: start: 20150130
  5. SERTRALINE [Concomitant]
     Active Substance: SERTRALINE HYDROCHLORIDE
  6. OMEPRAZOLE. [Suspect]
     Active Substance: OMEPRAZOLE
     Route: 048
  7. ENALAPRIL [Concomitant]
     Active Substance: ENALAPRIL
  8. SYMBICORT [Suspect]
     Active Substance: BUDESONIDE\FORMOTEROL FUMARATE DIHYDRATE
     Indication: ASTHMA
     Dosage: 160 4.5MCG, 2 PUFFS TWICE A DAY
     Route: 055
     Dates: start: 20150130
  9. VERAPAMIL [Concomitant]
     Active Substance: VERAPAMIL HYDROCHLORIDE
  10. PREDNISONE. [Concomitant]
     Active Substance: PREDNISONE
  11. CALCIUM [Concomitant]
     Active Substance: CALCIUM
  12. WARFARIN [Concomitant]
     Active Substance: WARFARIN
     Route: 048
  13. ANASTROZOLE. [Suspect]
     Active Substance: ANASTROZOLE
     Route: 048
  14. SYMBICORT [Suspect]
     Active Substance: BUDESONIDE\FORMOTEROL FUMARATE DIHYDRATE
     Indication: EMPHYSEMA
     Dosage: 160 4.5MCG, 2 PUFFS TWICE A DAY
     Route: 055
     Dates: start: 2013

REACTIONS (11)
  - Hypertension [Unknown]
  - Peripheral swelling [Unknown]
  - Anxiety [Unknown]
  - Productive cough [Not Recovered/Not Resolved]
  - Atrial fibrillation [Unknown]
  - Drug dose omission [Not Recovered/Not Resolved]
  - Dyspnoea [Fatal]
  - Chronic obstructive pulmonary disease [Unknown]
  - Product quality issue [Unknown]
  - Asthma [Unknown]
  - Emphysema [Unknown]

NARRATIVE: CASE EVENT DATE: 2014
